FAERS Safety Report 4765231-X (Version None)
Quarter: 2005Q3

REPORT INFORMATION
  Report Type: 
  Country: None (occurrence: None)
  Receive Date: 20050906
  Receipt Date: 20050819
  Transmission Date: 20060218
  Serious: Yes (Other)
  Sender: FDA-Public Use
  Company Number: SUSI-2005-00395

PATIENT
  Age: 60 Year
  Sex: Female

DRUGS (1)
  1. PENTASA [Suspect]
     Indication: COLITIS ULCERATIVE
     Dosage: 2 GRAMS DAILY, ORAL
     Route: 048
     Dates: start: 20050318, end: 20050405

REACTIONS (2)
  - DRUG INTOLERANCE [None]
  - GASTRITIS HAEMORRHAGIC [None]
